FAERS Safety Report 9479084 (Version 1)
Quarter: 2013Q3

REPORT INFORMATION
  Report Type: Spontaneous
  Country: VE (occurrence: VE)
  Receive Date: 20130827
  Receipt Date: 20130827
  Transmission Date: 20140515
  Serious: Yes (Life-Threatening, Hospitalization, Other)
  Sender: FDA-Public Use
  Company Number: VE-GLAXOSMITHKLINE-A1038830A

PATIENT
  Age: 10 Year
  Sex: Male
  Weight: 28 kg

DRUGS (1)
  1. LAMICTAL [Suspect]
     Indication: EPILEPSY
     Dosage: 25MG PER DAY
     Route: 048
     Dates: start: 20130616, end: 20130710

REACTIONS (6)
  - Stevens-Johnson syndrome [Unknown]
  - Skin lesion [Unknown]
  - Skin exfoliation [Unknown]
  - Oral disorder [Unknown]
  - Eye disorder [Unknown]
  - Renal failure acute [Unknown]
